FAERS Safety Report 5974602-5 (Version None)
Quarter: 2008Q4

REPORT INFORMATION
  Report Type: 
  Country: None (occurrence: None)
  Receive Date: 20081201
  Receipt Date: 20080201
  Transmission Date: 20090506
  Serious: No
  Sender: FDA-Public Use
  Company Number: US-AMGEN-KDL259949

PATIENT
  Sex: Female

DRUGS (16)
  1. ENBREL [Suspect]
     Indication: PSORIASIS
     Route: 058
     Dates: start: 20071227
  2. AMBIEN [Concomitant]
  3. KLONOPIN [Concomitant]
  4. BONIVA [Concomitant]
  5. HYDROCODONE BITARTRATE [Concomitant]
  6. COUMADIN [Concomitant]
  7. REFRESH [Concomitant]
     Route: 047
  8. COLCHICINE [Concomitant]
  9. CLONAZEPAM [Concomitant]
  10. PROVIGIL [Concomitant]
  11. SIMVASTATIN [Concomitant]
  12. CYMBALTA [Concomitant]
  13. HYDROCHLOROTHIAZIDE [Concomitant]
  14. NEXIUM [Concomitant]
  15. LYRICA [Concomitant]
  16. XANAX [Concomitant]

REACTIONS (7)
  - INJECTION SITE ERYTHEMA [None]
  - INJECTION SITE IRRITATION [None]
  - INJECTION SITE PAIN [None]
  - INJECTION SITE PRURITUS [None]
  - INJECTION SITE SWELLING [None]
  - PRODUCT QUALITY ISSUE [None]
  - URINE ODOUR ABNORMAL [None]
